FAERS Safety Report 6965814-2 (Version None)
Quarter: 2010Q3

REPORT INFORMATION
  Report Type: 
  Country: None (occurrence: None)
  Receive Date: 20100723
  Receipt Date: 20100723
  Transmission Date: 20110219
  Serious: Yes (Other)
  Sender: FDA-Public Use
  Company Number: None

PATIENT
  Sex: Female
  Weight: 68.0396 kg

DRUGS (2)
  1. BUDEPRION SR 100MG TEV [Suspect]
     Indication: ANXIETY
     Dosage: 1 TABLET 2X DAILY
     Dates: start: 20100101
  2. BUDEPRION SR 100MG TEV [Suspect]
     Indication: ANXIETY
     Dosage: 1 TABLET 2X DAILY
     Dates: start: 20100601

REACTIONS (4)
  - DIZZINESS [None]
  - MYALGIA [None]
  - SWOLLEN TONGUE [None]
  - TONGUE BITING [None]
